FAERS Safety Report 7716150-8 (Version None)
Quarter: 2011Q3

REPORT INFORMATION
  Report Type: 
  Country: None (occurrence: None)
  Receive Date: 20110829
  Receipt Date: 20110817
  Transmission Date: 20111222
  Serious: Yes (Hospitalization)
  Sender: FDA-Public Use
  Company Number: JP-UCBSA-038988

PATIENT
  Sex: Female

DRUGS (14)
  1. FOLIC ACID [Concomitant]
  2. MELOXICAM [Concomitant]
     Dosage: DAILY DOSE:10MG
     Dates: start: 20110330
  3. DIPYRIDAMOLE [Concomitant]
     Dosage: DAILY DOSE:150MG
  4. CERTOLIZUMAB PEGOL [Suspect]
     Route: 058
     Dates: start: 20110201
  5. OMEPRAZOLE [Concomitant]
     Dosage: DAILY DOSE:10MG
  6. OLOPATADINE HYDROCHLORIDE [Concomitant]
     Dosage: DAILY DOSE:10MG
     Dates: start: 20110426
  7. IRBESARTAN [Concomitant]
     Dosage: DAILY DOSE:100MG
  8. AMBROXOL HYDROCHLORIDE [Concomitant]
     Dosage: DAILY DOSE:45MG
     Dates: start: 20110621
  9. METHOTREXATE [Concomitant]
     Dosage: DIVIDED INTO THREE
  10. REBAMIPIDE [Concomitant]
     Dosage: DAILY DOSE:300MG
  11. NIFEDIPINE [Concomitant]
     Dosage: TOTAL DAILY DOSE: 40 MG
  12. PREDNISOLONE [Concomitant]
     Dosage: DAILY DOSE:3MG
     Dates: start: 20110202
  13. AROTINOLOL HYDROCHLORIDE [Concomitant]
     Dosage: DAILY DOSE:10MG
  14. CERTOLIZUMAB PEGOL [Suspect]
     Indication: RHEUMATOID ARTHRITIS
     Route: 058
     Dates: start: 20100202, end: 20110118

REACTIONS (1)
  - PNEUMONIA [None]
